FAERS Safety Report 9434175 (Version 1)
Quarter: 2013Q3

REPORT INFORMATION
  Report Type: Spontaneous
  Country: US (occurrence: None)
  Receive Date: 20130730
  Receipt Date: 20130730
  Transmission Date: 20140515
  Serious: No
  Sender: FDA-Public Use
  Company Number: None

PATIENT
  Sex: Female

DRUGS (1)
  1. ORENCIA [Suspect]
     Dosage: 125 MG ONCE A WEEK SUBCUTANEOUSLY
     Route: 058
     Dates: start: 2013

REACTIONS (1)
  - Menstrual disorder [None]
